FAERS Safety Report 21632910 (Version 1)
Quarter: 2022Q4

REPORT INFORMATION
  Report Type: Other
  Country: CN (occurrence: CN)
  Receive Date: 20221123
  Receipt Date: 20221123
  Transmission Date: 20230113
  Serious: Yes (Other)
  Sender: FDA-Public Use
  Company Number: CN-GE HEALTHCARE-2022CSU008443

PATIENT
  Age: 42 Year
  Sex: Female
  Weight: 61.5 kg

DRUGS (2)
  1. OMNISCAN [Suspect]
     Active Substance: GADODIAMIDE
     Indication: Diagnostic procedure
     Dosage: 15 ML, SINGLE
     Route: 041
     Dates: start: 20221109, end: 20221109
  2. OMNISCAN [Suspect]
     Active Substance: GADODIAMIDE
     Indication: Breast cancer

REACTIONS (3)
  - Eyelid oedema [Recovering/Resolving]
  - Erythema [Recovering/Resolving]
  - Pruritus [Recovering/Resolving]

NARRATIVE: CASE EVENT DATE: 20221109
